FAERS Safety Report 20836567 (Version 1)
Quarter: 2022Q2

REPORT INFORMATION
  Report Type: Report from Study
  Country: US (occurrence: US)
  Receive Date: 20220517
  Receipt Date: 20220517
  Transmission Date: 20220721
  Serious: Yes (Hospitalization)
  Sender: FDA-Public Use
  Company Number: US-GILEAD-2022-0581685

PATIENT
  Sex: Male

DRUGS (5)
  1. AZTREONAM LYSINE [Suspect]
     Active Substance: AZTREONAM LYSINE
     Indication: Cystic fibrosis lung
     Dosage: 75 MG, TID, EVERY OTHER MONTH
     Route: 055
     Dates: start: 20200221
  2. ALBUTEROL [Concomitant]
     Active Substance: ALBUTEROL
  3. CREON [Concomitant]
     Active Substance: PANCRELIPASE AMYLASE\PANCRELIPASE LIPASE\PANCRELIPASE PROTEASE
  4. VITAMINS NOS [Concomitant]
     Active Substance: VITAMINS
  5. TRIAMCINOLONE [Concomitant]
     Active Substance: TRIAMCINOLONE

REACTIONS (2)
  - Viral infection [Recovered/Resolved]
  - Pyrexia [Recovered/Resolved]
